FAERS Safety Report 9732070 (Version 1)
Quarter: 2013Q4

REPORT INFORMATION
  Report Type: Spontaneous
  Country: GB (occurrence: GB)
  Receive Date: 20131205
  Receipt Date: 20131205
  Transmission Date: 20140711
  Serious: Yes (Death, Hospitalization, Other)
  Sender: FDA-Public Use
  Company Number: GB-MYLANLABS-2013S1026297

PATIENT
  Age: 66 Year
  Sex: Male

DRUGS (13)
  1. CLOMIPRAMINE [Suspect]
     Indication: SCHIZOPHRENIA
     Dates: start: 19970422
  2. CLOMIPRAMINE [Suspect]
     Indication: SCHIZOPHRENIA
  3. CHLORPROMAZINE [Suspect]
     Indication: SCHIZOPHRENIA
     Route: 048
     Dates: start: 19970422
  4. CLOZARIL [Suspect]
     Indication: SCHIZOPHRENIA
     Route: 048
     Dates: start: 20010701
  5. DEPAKOTE [Suspect]
     Indication: SCHIZOPHRENIA
     Route: 048
     Dates: start: 20060420
  6. DEPAKOTE [Suspect]
     Indication: SCHIZOPHRENIA
     Route: 048
  7. FERROUS FUMARATE [Concomitant]
     Indication: PRODUCT USED FOR UNKNOWN INDICATION
     Route: 048
     Dates: start: 20111121
  8. FLUDROCORTISONE [Concomitant]
     Indication: PRODUCT USED FOR UNKNOWN INDICATION
     Route: 048
     Dates: start: 20101222
  9. LANSOPRAZOLE [Concomitant]
     Indication: PRODUCT USED FOR UNKNOWN INDICATION
     Route: 048
  10. LAXIDO /07474401/ [Concomitant]
     Indication: PRODUCT USED FOR UNKNOWN INDICATION
     Route: 048
     Dates: start: 20120608
  11. MELOXICAM [Concomitant]
     Indication: PRODUCT USED FOR UNKNOWN INDICATION
     Route: 048
  12. PROCYCLIDINE [Concomitant]
     Indication: PRODUCT USED FOR UNKNOWN INDICATION
     Route: 048
     Dates: start: 19980109
  13. RANITIDINE [Concomitant]
     Indication: PRODUCT USED FOR UNKNOWN INDICATION
     Route: 048
     Dates: start: 20121123

REACTIONS (7)
  - Barrett^s oesophagus [Not Recovered/Not Resolved]
  - Blood creatinine increased [Unknown]
  - Fall [Fatal]
  - Myocardial infarction [Fatal]
  - Iron deficiency anaemia [Not Recovered/Not Resolved]
  - Pneumonia [Fatal]
  - Prothrombin time shortened [Unknown]
